FAERS Safety Report 12942221 (Version 2)
Quarter: 2016Q4

REPORT INFORMATION
  Report Type: Spontaneous
  Country: US (occurrence: US)
  Receive Date: 20161114
  Receipt Date: 20161121
  Transmission Date: 20170207
  Serious: Yes (Other)
  Sender: FDA-Public Use
  Company Number: US-EMD SERONO-8117319

PATIENT
  Age: 30 Year
  Sex: Female

DRUGS (2)
  1. REBIF [Suspect]
     Active Substance: INTERFERON BETA-1A
     Indication: MULTIPLE SCLEROSIS
     Dates: start: 2008, end: 201202
  2. REBIF [Suspect]
     Active Substance: INTERFERON BETA-1A
     Dates: start: 201209

REACTIONS (5)
  - Injection site reaction [Unknown]
  - Generalised tonic-clonic seizure [Recovered/Resolved]
  - Confusional state [Unknown]
  - Drug withdrawal syndrome [Unknown]
  - Treatment noncompliance [Unknown]

NARRATIVE: CASE EVENT DATE: 201001
